FAERS Safety Report 16222485 (Version 1)
Quarter: 2019Q2

REPORT INFORMATION
  Report Type: Spontaneous
  Country: US (occurrence: US)
  Receive Date: 20190419
  Receipt Date: 20190419
  Transmission Date: 20190711
  Serious: Yes (Hospitalization, Disabling)
  Sender: FDA-Public Use
  Company Number: None

PATIENT
  Age: 68 Year
  Sex: Male
  Weight: 94.5 kg

DRUGS (2)
  1. CIPRO [Suspect]
     Active Substance: CIPROFLOXACIN HYDROCHLORIDE
  2. LATANOPROST. [Concomitant]
     Active Substance: LATANOPROST

REACTIONS (18)
  - Confusional state [None]
  - Insomnia [None]
  - Mood swings [None]
  - Joint swelling [None]
  - Asthenia [None]
  - Paraesthesia [None]
  - Myalgia [None]
  - Hypoaesthesia [None]
  - Hallucination [None]
  - Rash [None]
  - Chest pain [None]
  - Appetite disorder [None]
  - Muscle swelling [None]
  - Fatigue [None]
  - Amnesia [None]
  - Memory impairment [None]
  - Disturbance in attention [None]
  - Arthralgia [None]

NARRATIVE: CASE EVENT DATE: 20181218
